FAERS Safety Report 17920377 (Version 3)
Quarter: 2021Q3

REPORT INFORMATION
  Report Type: Report from Study
  Country: RU (occurrence: RU)
  Receive Date: 20200620
  Receipt Date: 20210706
  Transmission Date: 20211014
  Serious: Yes (Other)
  Sender: FDA-Public Use
  Company Number: NVSC2020RU168792

PATIENT
  Age: 44 Year

DRUGS (4)
  1. DABRAFENIB,TRAMETINIB [Suspect]
     Active Substance: DABRAFENIB\TRAMETINIB
     Indication: MALIGNANT MELANOMA
     Dosage: UNK
     Route: 065
     Dates: start: 20200205
  2. NIVOLUMAB [Suspect]
     Active Substance: NIVOLUMAB
     Indication: IMMUNOCHEMOTHERAPY
     Dosage: UNK
     Route: 065
     Dates: start: 20190403
  3. PREDNISOLON [Concomitant]
     Active Substance: PREDNISOLONE
     Indication: PRODUCT USED FOR UNKNOWN INDICATION
     Dosage: 2 MG/KG
     Route: 065
  4. IPILIMUMAB [Suspect]
     Active Substance: IPILIMUMAB
     Indication: IMMUNOCHEMOTHERAPY
     Dosage: UNK
     Route: 065
     Dates: start: 20191003, end: 20200108

REACTIONS (5)
  - Metastases to lung [Recovered/Resolved]
  - Malignant neoplasm progression [Unknown]
  - Hepatitis toxic [Recovered/Resolved]
  - Metastases to liver [Unknown]
  - Malignant melanoma [Unknown]

NARRATIVE: CASE EVENT DATE: 202001
